FAERS Safety Report 7538424-6 (Version None)
Quarter: 2011Q2

REPORT INFORMATION
  Report Type: 
  Country: None (occurrence: None)
  Receive Date: 20110609
  Receipt Date: 20110601
  Transmission Date: 20111010
  Serious: Yes (Hospitalization, Other)
  Sender: FDA-Public Use
  Company Number: US-AMGEN-USASP2011023643

PATIENT
  Age: 25 Year
  Sex: Female
  Weight: 51.701 kg

DRUGS (4)
  1. ENBREL [Suspect]
     Indication: PSORIATIC ARTHROPATHY
     Dosage: 50 MG, 2 TIMES/WK
     Dates: start: 20100914, end: 20101201
  2. ENBREL [Suspect]
     Indication: PSORIASIS
     Dosage: 50 MG, QWK
     Dates: start: 20110105, end: 20110301
  3. CITALOPRAM HYDROBROMIDE [Concomitant]
     Dosage: 20 MG, QD
  4. IBUPROFEN [Concomitant]
     Dosage: UNK UNK, PRN

REACTIONS (7)
  - UPPER RESPIRATORY TRACT INFECTION [None]
  - GUILLAIN-BARRE SYNDROME [None]
  - HEADACHE [None]
  - ARTHRALGIA [None]
  - INFLUENZA [None]
  - PSORIASIS [None]
  - JOINT SWELLING [None]
